FAERS Safety Report 5167902-2 (Version None)
Quarter: 2006Q4

REPORT INFORMATION
  Report Type: 
  Country: None (occurrence: None)
  Receive Date: 20061208
  Receipt Date: 20061127
  Transmission Date: 20070319
  Serious: Yes (Hospitalization, Other)
  Sender: FDA-Public Use
  Company Number: DE-BAYER-200611621BVD

PATIENT
  Age: 72 Year
  Sex: Male
  Weight: 76 kg

DRUGS (7)
  1. SORAFENIB OR PLACEBO [Suspect]
     Indication: ACUTE MYELOID LEUKAEMIA
     Dosage: TOTAL DAILY DOSE: 800 MG  UNIT DOSE: 200 MG
     Route: 048
     Dates: start: 20061026, end: 20061106
  2. SORAFENIB OR PLACEBO [Suspect]
     Dosage: TOTAL DAILY DOSE: 800 MG  UNIT DOSE: 200 MG
     Route: 048
     Dates: start: 20061113, end: 20061124
  3. CIPROBAY [Concomitant]
     Route: 048
     Dates: start: 20061101
  4. VALTREX [Concomitant]
  5. MORONAL [Concomitant]
  6. COTRIM DS [Concomitant]
  7. ANTINEOPLASTIC AGENTS [Concomitant]

REACTIONS (9)
  - DIARRHOEA [None]
  - HERPES ZOSTER [None]
  - INFLAMMATION [None]
  - LEUKOPENIA [None]
  - MUCOSAL INFLAMMATION [None]
  - NAUSEA [None]
  - PANCYTOPENIA [None]
  - PYREXIA [None]
  - THROMBOCYTOPENIA [None]
